FAERS Safety Report 21644695 (Version 2)
Quarter: 2022Q4

REPORT INFORMATION
  Report Type: Spontaneous
  Country: BR (occurrence: BR)
  Receive Date: 20221125
  Receipt Date: 20221216
  Transmission Date: 20230113
  Serious: Yes (Other)
  Sender: FDA-Public Use
  Company Number: BR-TAKEDA-2022TUS088279

PATIENT
  Sex: Female

DRUGS (1)
  1. LISDEXAMFETAMINE DIMESYLATE [Suspect]
     Active Substance: LISDEXAMFETAMINE DIMESYLATE
     Indication: Product used for unknown indication
     Dosage: UNK
     Route: 065

REACTIONS (5)
  - Condition aggravated [Unknown]
  - Disturbance in attention [Unknown]
  - Product availability issue [Unknown]
  - Fatigue [Unknown]
  - Anxiety [Unknown]
